FAERS Safety Report 26025636 (Version 1)
Quarter: 2025Q4

REPORT INFORMATION
  Report Type: Spontaneous
  Country: EU (occurrence: EU)
  Receive Date: 20251111
  Receipt Date: 20251111
  Transmission Date: 20260117
  Serious: Yes (Hospitalization)
  Sender: RANBAXY
  Company Number: EU-AFSSAPS-PC2025000606

PATIENT
  Age: 58 Year
  Sex: Male

DRUGS (3)
  1. PANTOPRAZOLE [Suspect]
     Active Substance: PANTOPRAZOLE
     Indication: Product used for unknown indication
     Dosage: UNK
     Route: 048
     Dates: start: 2025
  2. PROPOFOL [Suspect]
     Active Substance: PROPOFOL
     Indication: Agitation
     Dosage: UNK
     Route: 042
     Dates: start: 20250605, end: 20250623
  3. CEFAZOLIN SODIUM [Suspect]
     Active Substance: CEFAZOLIN SODIUM
     Indication: Lung disorder
     Dosage: UNK
     Route: 042
     Dates: start: 20250607, end: 20250612

REACTIONS (1)
  - Pancreatitis [Recovering/Resolving]

NARRATIVE: CASE EVENT DATE: 20250614
